FAERS Safety Report 5869221-5 (Version None)
Quarter: 2008Q3

REPORT INFORMATION
  Report Type: 
  Country: None (occurrence: None)
  Receive Date: 20080903
  Receipt Date: 20080822
  Transmission Date: 20090109
  Serious: Yes (Other)
  Sender: FDA-Public Use
  Company Number: US-ELI_LILLY_AND_COMPANY-US200807005890

PATIENT
  Sex: Male

DRUGS (4)
  1. HUMALOG [Suspect]
     Indication: DIABETES MELLITUS
     Dosage: UNK, UNK
     Route: 058
  2. HUMALOG [Suspect]
  3. HUMULIN R [Suspect]
     Route: 058
     Dates: start: 19750101
  4. HUMULIN N [Suspect]
     Route: 058
     Dates: start: 19750101

REACTIONS (5)
  - BLOOD GLUCOSE DECREASED [None]
  - BLOOD GLUCOSE INCREASED [None]
  - DRUG INEFFECTIVE [None]
  - HIP ARTHROPLASTY [None]
  - HYPOGLYCAEMIC COMA [None]
